FAERS Safety Report 23868243 (Version 1)
Quarter: 2024Q2

REPORT INFORMATION
  Report Type: Spontaneous
  Country: CA (occurrence: None)
  Receive Date: 20240516
  Receipt Date: 20240516
  Transmission Date: 20240715
  Serious: Yes (Hospitalization)
  Sender: FDA-Public Use
  Company Number: None

PATIENT
  Age: 42 Year
  Sex: Female
  Weight: 121.5 kg

DRUGS (4)
  1. OZEMPIC [Suspect]
     Active Substance: SEMAGLUTIDE
     Indication: Diabetes mellitus
     Dosage: 1 INJECTION INJECT INTO THIGH
     Route: 050
     Dates: start: 20230401, end: 20240301
  2. GLICLAZIDE [Suspect]
     Active Substance: GLICLAZIDE
  3. met Forman [Concomitant]
  4. RANITIDINE [Concomitant]

REACTIONS (3)
  - Product substitution issue [None]
  - Inappropriate schedule of product discontinuation [None]
  - Seizure [None]

NARRATIVE: CASE EVENT DATE: 20240312
